FAERS Safety Report 10082023 (Version 1)
Quarter: 2014Q2

REPORT INFORMATION
  Report Type: Spontaneous
  Country: US (occurrence: None)
  Receive Date: 20140415
  Receipt Date: 20140415
  Transmission Date: 20141212
  Serious: Yes (Hospitalization)
  Sender: FDA-Public Use
  Company Number: None

PATIENT
  Age: 71 Year
  Sex: Male
  Weight: 110 kg

DRUGS (1)
  1. DICLOFENAC [Suspect]
     Route: 048
     Dates: start: 20130605, end: 20140122

REACTIONS (3)
  - Melaena [None]
  - Abdominal pain upper [None]
  - Anastomotic ulcer [None]
